FAERS Safety Report 20770019 (Version 3)
Quarter: 2022Q3

REPORT INFORMATION
  Report Type: Spontaneous
  Country: JP (occurrence: JP)
  Receive Date: 20220429
  Receipt Date: 20220912
  Transmission Date: 20221027
  Serious: Yes (Other)
  Sender: FDA-Public Use
  Company Number: JP-BAYER-2022A060213

PATIENT
  Age: 66 Year
  Sex: Male
  Weight: 39.9 kg

DRUGS (54)
  1. VERICIGUAT HYDROCHLORIDE [Suspect]
     Active Substance: VERICIGUAT HYDROCHLORIDE
     Indication: Cardiac failure chronic
     Dosage: 2.5 MG, QD
     Route: 048
     Dates: start: 20220323, end: 20220401
  2. DOBUTAMINE HYDROCHLORIDE [Concomitant]
     Active Substance: DOBUTAMINE HYDROCHLORIDE
     Indication: Cardiac failure chronic
     Dosage: 2A
     Dates: start: 20211025, end: 20211115
  3. DOBUTAMINE HYDROCHLORIDE [Concomitant]
     Active Substance: DOBUTAMINE HYDROCHLORIDE
     Dosage: 2A
     Dates: start: 20220105, end: 20220114
  4. DOBUTAMINE HYDROCHLORIDE [Concomitant]
     Active Substance: DOBUTAMINE HYDROCHLORIDE
     Dosage: 2A
     Dates: start: 20220217, end: 20220302
  5. DOBUTAMINE HYDROCHLORIDE [Concomitant]
     Active Substance: DOBUTAMINE HYDROCHLORIDE
     Dosage: 2A
     Dates: start: 20220303
  6. DOBUTAMINE HYDROCHLORIDE [Concomitant]
     Active Substance: DOBUTAMINE HYDROCHLORIDE
     Dosage: CHANGED FROM 2.5 TO 2.0ML/H IN THE MORNING
     Dates: start: 20220310
  7. DOBUTAMINE HYDROCHLORIDE [Concomitant]
     Active Substance: DOBUTAMINE HYDROCHLORIDE
     Dosage: CHANGED FROM 2.0 TO 1.5ML/H IN THE MORNING
     Dates: start: 20220315
  8. DOBUTAMINE HYDROCHLORIDE [Concomitant]
     Active Substance: DOBUTAMINE HYDROCHLORIDE
     Dosage: CHANGED FROM 1.0 TO 1.5ML/H
     Dates: start: 20220317
  9. DOBUTAMINE HYDROCHLORIDE [Concomitant]
     Active Substance: DOBUTAMINE HYDROCHLORIDE
     Dosage: CHANGED FROM 1.0 TO 2.0ML/H
     Dates: start: 20220324
  10. AZOSEMIDE [Concomitant]
     Active Substance: AZOSEMIDE
     Dosage: 2 DF, QD
  11. AZOSEMIDE [Concomitant]
     Active Substance: AZOSEMIDE
     Dosage: 1 DF, QD
     Dates: start: 20211102, end: 20211124
  12. AZOSEMIDE [Concomitant]
     Active Substance: AZOSEMIDE
     Dosage: 2 DF, QD
     Dates: start: 20211125
  13. SAMSCA [Concomitant]
     Active Substance: TOLVAPTAN
     Dosage: 2 DF, QD
  14. SAMSCA [Concomitant]
     Active Substance: TOLVAPTAN
     Dosage: 1 DF, QD
     Dates: start: 20211102, end: 20211119
  15. SAMSCA [Concomitant]
     Active Substance: TOLVAPTAN
     Dosage: 2 DF, QD
     Dates: start: 20211120
  16. CANDESARTAN CILEXETIL [Concomitant]
     Active Substance: CANDESARTAN CILEXETIL
     Dosage: 1 DF, QD
     Dates: start: 20211102, end: 20211130
  17. CANDESARTAN CILEXETIL [Concomitant]
     Active Substance: CANDESARTAN CILEXETIL
     Dosage: 1 DF, QD
     Dates: start: 20220109
  18. CARVEDILOL [Concomitant]
     Active Substance: CARVEDILOL
     Dosage: 1 DF, QD
     Dates: start: 20211109, end: 20211124
  19. CARVEDILOL [Concomitant]
     Active Substance: CARVEDILOL
     Dosage: 1 DF, BID
     Dates: start: 20211125, end: 20220204
  20. CARVEDILOL [Concomitant]
     Active Substance: CARVEDILOL
     Dosage: 2 DF, BID
     Dates: start: 20220204
  21. JARDIANCE [Concomitant]
     Active Substance: EMPAGLIFLOZIN
     Dosage: 1 DF, QD
     Dates: start: 20220109, end: 20220109
  22. JARDIANCE [Concomitant]
     Active Substance: EMPAGLIFLOZIN
     Dosage: 1 DF, QD
     Dates: start: 20220127, end: 20220217
  23. JARDIANCE [Concomitant]
     Active Substance: EMPAGLIFLOZIN
     Dosage: 1 DF, QD
     Dates: start: 20220218
  24. PIMOBENDAN [Concomitant]
     Active Substance: PIMOBENDAN
     Dosage: 1 DF, QD
     Dates: start: 20211106, end: 20211119
  25. PIMOBENDAN [Concomitant]
     Active Substance: PIMOBENDAN
     Dosage: 2 DF, QD
     Dates: start: 20211120, end: 20220304
  26. PIMOBENDAN [Concomitant]
     Active Substance: PIMOBENDAN
     Dosage: 2 DF, QD
     Dates: start: 20220226, end: 20220304
  27. PIMOBENDAN [Concomitant]
     Active Substance: PIMOBENDAN
     Dosage: 4 TABLETS 2X (DIVIDED DOSES)
     Dates: start: 20220304
  28. FUROSEMIDE [Concomitant]
     Active Substance: FUROSEMIDE
     Dosage: 1 DF, QD
     Dates: start: 20220316
  29. PREDONINE [Concomitant]
     Active Substance: PREDNISOLONE
     Dosage: 1 DF, QD
  30. PREDONINE [Concomitant]
     Active Substance: PREDNISOLONE
     Dosage: 2 DF, QD
     Dates: start: 20211104, end: 20211109
  31. PREDONINE [Concomitant]
     Active Substance: PREDNISOLONE
     Dosage: 2 DF, QD
     Dates: start: 20211110, end: 20220208
  32. PREDONINE [Concomitant]
     Active Substance: PREDNISOLONE
     Dosage: 1 DF, QD (OFF ON SUNDAY)
     Dates: start: 20220209, end: 20220307
  33. PREDONINE [Concomitant]
     Active Substance: PREDNISOLONE
     Dosage: 1 DF, QD (OFF ON SUNDAYS AND WEDNESDAYS)
     Dates: start: 20220309
  34. PREDONINE [Concomitant]
     Active Substance: PREDNISOLONE
     Dosage: 1 DF, QD
  35. SPIRONOLACTONE [Concomitant]
     Active Substance: SPIRONOLACTONE
     Dosage: 2 DF, QD
  36. SPIRONOLACTONE [Concomitant]
     Active Substance: SPIRONOLACTONE
     Dosage: 1 DF, QD
     Dates: start: 20211102, end: 20211124
  37. SPIRONOLACTONE [Concomitant]
     Active Substance: SPIRONOLACTONE
     Dosage: 2 DF, QD
     Dates: start: 20211125
  38. FEBUXOSTAT [Concomitant]
     Active Substance: FEBUXOSTAT
     Dosage: 1 DF, QD
  39. FEBUXOSTAT [Concomitant]
     Active Substance: FEBUXOSTAT
     Dosage: 1 DF, QD
  40. DAPAGLIFLOZIN [Concomitant]
     Active Substance: DAPAGLIFLOZIN
     Dosage: 1 DOSAGE FORM, QD
  41. DAPAGLIFLOZIN [Concomitant]
     Active Substance: DAPAGLIFLOZIN
  42. REBAMIPIDE [Concomitant]
     Active Substance: REBAMIPIDE
     Dosage: 1 DF, QD
  43. AMMONIUM GLYCYRRHIZATE\GLYCINE\RACEMETHIONINE [Concomitant]
     Active Substance: AMMONIUM GLYCYRRHIZATE\GLYCINE\RACEMETHIONINE
     Dosage: 1 DF, BID
  44. AMMONIUM GLYCYRRHIZATE\GLYCINE\RACEMETHIONINE [Concomitant]
     Active Substance: AMMONIUM GLYCYRRHIZATE\GLYCINE\RACEMETHIONINE
     Dosage: 1 DF, BID
  45. METHYLCOBALAMIN [Concomitant]
     Active Substance: METHYLCOBALAMIN
     Dosage: 1 DF, TID
  46. METHYLCOBALAMIN [Concomitant]
     Active Substance: METHYLCOBALAMIN
     Dosage: 1 DF, TID
  47. ACETAMINOPHEN\TRAMADOL HYDROCHLORIDE [Concomitant]
     Active Substance: ACETAMINOPHEN\TRAMADOL HYDROCHLORIDE
     Dosage: 1 DF, BID
  48. ACETAMINOPHEN\TRAMADOL HYDROCHLORIDE [Concomitant]
     Active Substance: ACETAMINOPHEN\TRAMADOL HYDROCHLORIDE
     Dosage: 1 DF, BID
  49. SYMBICORT [Concomitant]
     Active Substance: BUDESONIDE\FORMOTEROL FUMARATE DIHYDRATE
     Dosage: ONE INHALING PER TIME, TWICE A DAY
     Route: 055
     Dates: start: 20211114
  50. SYMBICORT [Concomitant]
     Active Substance: BUDESONIDE\FORMOTEROL FUMARATE DIHYDRATE
     Dosage: TWO INHALING PER TIME, TWICE A DAY
     Route: 055
     Dates: start: 20220401
  51. SULTANOL [Concomitant]
     Active Substance: ALBUTEROL SULFATE
     Dosage: TWO INHALING PER TIME AT THE TIME OF ATTACK, UP TO 4 TIMES A DAY
     Route: 055
  52. SULTANOL [Concomitant]
     Active Substance: ALBUTEROL SULFATE
     Dosage: TWO INHALING PER TIME AT THE TIME OF ATTACK, UP TO 4 TIMES A DAY
     Route: 055
  53. PROCATEROL HYDROCHLORIDE [Concomitant]
     Active Substance: PROCATEROL HYDROCHLORIDE
     Dosage: TWO INHALING PER TIME AT THE TIME OF ATTACK
     Route: 055
     Dates: start: 20211207
  54. DOCARPAMINE [Concomitant]
     Active Substance: DOCARPAMINE
     Dosage: 1 G, TID
     Route: 048
     Dates: start: 20220303

REACTIONS (4)
  - Toxic skin eruption [Recovered/Resolved]
  - Erythema [Recovered/Resolved]
  - Pruritus [Recovered/Resolved]
  - Purpura [Recovered/Resolved]

NARRATIVE: CASE EVENT DATE: 20220331
